FAERS Safety Report 19967178 (Version 1)
Quarter: 2021Q4

REPORT INFORMATION
  Report Type: Other
  Country: IL (occurrence: IL)
  Receive Date: 20211019
  Receipt Date: 20211019
  Transmission Date: 20220304
  Serious: Yes (Other)
  Sender: FDA-Public Use
  Company Number: IL-ROCHE-2906051

PATIENT
  Sex: Male

DRUGS (2)
  1. GLOFITAMAB [Suspect]
     Active Substance: GLOFITAMAB
     Indication: Diffuse large B-cell lymphoma
     Dosage: 10 MG/ 2 ML?CYCLE 1 DAY 8 (C1D8): 2.5 MG?CYCLE 2 DAY 1 (C2D1) TO CYCLE 12 DAY 1 (C12D1): GLOFITAMAB
     Route: 042
     Dates: start: 20210829
  2. OBINUTUZUMAB [Suspect]
     Active Substance: OBINUTUZUMAB
     Indication: Diffuse large B-cell lymphoma
     Dosage: CYCLE1 DAY 1 (C1D1): OBINUTUZUMAB 1000 MG FLAT DOSE AS PRETREATMENT;
     Route: 042
     Dates: start: 20210822

REACTIONS (1)
  - Cytokine release syndrome [Unknown]
